FAERS Safety Report 9173718 (Version 1)
Quarter: 2013Q1

REPORT INFORMATION
  Report Type: Spontaneous
  Country: GB (occurrence: None)
  Receive Date: 20130318
  Receipt Date: 20130318
  Transmission Date: 20140127
  Serious: Yes (Other)
  Sender: FDA-Public Use
  Company Number: 2013-03675

PATIENT
  Age: 64 Year
  Sex: Male

DRUGS (4)
  1. LEVETIRACETAM [Suspect]
     Indication: EPILEPSY
     Dosage: 500 MG, BID 500 MG, 2X/DAY (MORNING AND EVENING), UNKNOWN
  2. PHENYTOIN (PHENYTOIN) [Suspect]
     Indication: EPILEPSY
     Dosage: 250 MG, SINGLE, UNKNOWN
  3. MYSOLINE [Suspect]
     Indication: EPILEPSY
     Dosage: 250 MG, DAILY, UNKNOWN
  4. CLOBAZAM (CLOBAZAM) [Concomitant]

REACTIONS (5)
  - Toxicity to various agents [None]
  - Hypertension [None]
  - Cardiac disorder [None]
  - Dizziness [None]
  - Headache [None]
